FAERS Safety Report 6795678-1 (Version None)
Quarter: 2010Q2

REPORT INFORMATION
  Report Type: 
  Country: None (occurrence: None)
  Receive Date: 20100625
  Receipt Date: 20100615
  Transmission Date: 20101027
  Serious: Yes (Hospitalization, Other)
  Sender: FDA-Public Use
  Company Number: FR-ELI_LILLY_AND_COMPANY-FR201006003870

PATIENT
  Sex: Female

DRUGS (3)
  1. GEMZAR [Suspect]
     Indication: METASTATIC NEOPLASM
     Dosage: UNK, UNKNOWN
     Route: 042
     Dates: start: 20100428
  2. CISPLATIN [Concomitant]
     Indication: METASTATIC NEOPLASM
     Dosage: UNK, UNKNOWN
     Route: 065
     Dates: start: 20100428, end: 20100430
  3. ZOPHREN [Concomitant]
     Indication: VOMITING
     Dosage: UNK, UNKNOWN
     Route: 065

REACTIONS (2)
  - SYNCOPE [None]
  - VOMITING [None]
